FAERS Safety Report 25839945 (Version 1)
Quarter: 2025Q3

REPORT INFORMATION
  Report Type: Spontaneous
  Country: US (occurrence: US)
  Receive Date: 20250924
  Receipt Date: 20250924
  Transmission Date: 20251020
  Serious: Yes (Hospitalization)
  Sender: ALMUS
  Company Number: US-ALMIRALL-US-2025-3352

PATIENT
  Age: 69 Year
  Sex: Female

DRUGS (3)
  1. KLISYRI [Suspect]
     Active Substance: TIRBANIBULIN
     Indication: Precancerous condition
     Dates: start: 20250902
  2. BISOPROLOL [Concomitant]
     Active Substance: BISOPROLOL
  3. ATORVASTATIN [Concomitant]
     Active Substance: ATORVASTATIN

REACTIONS (1)
  - Urticaria [Recovering/Resolving]

NARRATIVE: CASE EVENT DATE: 20250909
